FAERS Safety Report 11810385 (Version 1)
Quarter: 2015Q4

REPORT INFORMATION
  Report Type: Spontaneous
  Country: US (occurrence: US)
  Receive Date: 20151208
  Receipt Date: 20151208
  Transmission Date: 20160305
  Serious: Yes (Other)
  Sender: FDA-Public Use
  Company Number: US-PROCTER_AND_GAMBLE-GS15032996

PATIENT
  Age: 34 Year
  Sex: Female

DRUGS (1)
  1. CREST 3D WHITE VIVID RADIANT MINT [Suspect]
     Active Substance: SODIUM FLUORIDE
     Dosage: SMALL AMOUNT ON TOOTHBRUSH USED ONE TIME ONLY
     Route: 002
     Dates: start: 20151128, end: 20151128

REACTIONS (9)
  - Enlarged uvula [Recovering/Resolving]
  - Mouth swelling [Recovering/Resolving]
  - Respiration abnormal [Recovering/Resolving]
  - Oral dysaesthesia [Recovering/Resolving]
  - Dyspnoea [Recovering/Resolving]
  - Oral mucosal blistering [Recovering/Resolving]
  - Urticaria [Recovering/Resolving]
  - Lip swelling [Recovering/Resolving]
  - Lip pain [Recovering/Resolving]

NARRATIVE: CASE EVENT DATE: 20151128
